FAERS Safety Report 10576784 (Version 1)
Quarter: 2014Q4

REPORT INFORMATION
  Report Type: Spontaneous
  Country: US (occurrence: None)
  Receive Date: 20141110
  Receipt Date: 20141110
  Transmission Date: 20150529
  Serious: Yes (Life-Threatening, Hospitalization)
  Sender: FDA-Public Use
  Company Number: None

PATIENT
  Age: 67 Year
  Sex: Female
  Weight: 71.5 kg

DRUGS (1)
  1. ETHAMBUTOL [Suspect]
     Active Substance: ETHAMBUTOL HYDROCHLORIDE
     Indication: FUNGAL INFECTION
     Dosage: 1 TAB
     Route: 048
     Dates: start: 20140908, end: 20141101

REACTIONS (10)
  - Hypersensitivity [None]
  - Swelling face [None]
  - Wheezing [None]
  - Drug interaction [None]
  - Liver injury [None]
  - Lip swelling [None]
  - Dyspnoea [None]
  - Eye swelling [None]
  - Swollen tongue [None]
  - Renal disorder [None]

NARRATIVE: CASE EVENT DATE: 20141022
